FAERS Safety Report 7600572-X (Version None)
Quarter: 2011Q3

REPORT INFORMATION
  Report Type: 
  Country: None (occurrence: None)
  Receive Date: 20110711
  Receipt Date: 20110704
  Transmission Date: 20111222
  Serious: Yes (Life-Threatening, Hospitalization)
  Sender: FDA-Public Use
  Company Number: MX-ROCHE-787448

PATIENT
  Sex: Female
  Weight: 52 kg

DRUGS (4)
  1. CAPECITABINE [Suspect]
     Indication: COLORECTAL CANCER
     Route: 048
     Dates: start: 20090101, end: 20110629
  2. IRINOTECAN HYDROCHLORIDE [Concomitant]
     Indication: COLORECTAL CANCER
     Route: 042
     Dates: start: 20100501
  3. OXALIPLATIN [Concomitant]
     Indication: COLORECTAL CANCER
     Route: 042
     Dates: start: 20101001
  4. BEVACIZUMAB [Suspect]
     Indication: COLORECTAL CANCER
     Route: 042
     Dates: start: 20100501

REACTIONS (7)
  - ASCITES [None]
  - HYPERSENSITIVITY [None]
  - ASTHENIA [None]
  - ABDOMINAL DISTENSION [None]
  - INFUSION RELATED REACTION [None]
  - DIARRHOEA [None]
  - VOMITING [None]
